FAERS Safety Report 9657920 (Version 1)
Quarter: 2013Q4

REPORT INFORMATION
  Report Type: Spontaneous
  Country: US (occurrence: None)
  Receive Date: 20131029
  Receipt Date: 20131029
  Transmission Date: 20140711
  Serious: Yes (Hospitalization)
  Sender: FDA-Public Use
  Company Number: IPC201310-000416

PATIENT
  Age: 81 Year
  Sex: Male
  Weight: 97.52 kg

DRUGS (5)
  1. FUROSEMIDE [Suspect]
     Indication: POLYURIA
     Dosage: 20MG, ONCE DAILY
  2. METOPROLOL TARTRATE [Suspect]
     Indication: CARDIAC DISORDER
     Dates: start: 201304, end: 20130504
  3. COMBIVENT INHALER (IPRATROPIUM BROMIDE, ALBUTEROL SULFATE) (IPRATROPIUM BROMIDE, ALBUTEROL SULFATE) [Concomitant]
  4. SIMVASTATIN (SIMVASTATIN) (SIMVASTATIN) [Concomitant]
  5. ASPIRIN (ASPIRIN) (ASPIRIN) [Concomitant]

REACTIONS (4)
  - Head injury [None]
  - Fall [None]
  - Rib fracture [None]
  - Facial bones fracture [None]
